FAERS Safety Report 21296696 (Version 1)
Quarter: 2022Q3

REPORT INFORMATION
  Report Type: Spontaneous
  Country: US (occurrence: None)
  Receive Date: 20220902
  Receipt Date: 20220902
  Transmission Date: 20221026
  Serious: Yes (Hospitalization)
  Sender: FDA-Public Use
  Company Number: None

PATIENT
  Age: 56 Year
  Sex: Male

DRUGS (2)
  1. HALOPERIDOL [Suspect]
     Active Substance: HALOPERIDOL
     Indication: Depression
     Dosage: 2 MG BID PO?
     Route: 048
     Dates: start: 20220808, end: 20220812
  2. HALOPERIDOL [Suspect]
     Active Substance: HALOPERIDOL
     Indication: Anxiety

REACTIONS (1)
  - Dystonia [None]

NARRATIVE: CASE EVENT DATE: 20220811
